FAERS Safety Report 24690886 (Version 1)
Quarter: 2024Q4

REPORT INFORMATION
  Report Type: Spontaneous
  Country: US (occurrence: US)
  Receive Date: 20241203
  Receipt Date: 20241203
  Transmission Date: 20250114
  Serious: No
  Sender: PAREXEL
  Company Number: US-NOVEN PHARMACEUTICALS, INC.-2023-NOV-US001380

PATIENT
  Age: 73 Year
  Sex: Female

DRUGS (1)
  1. ESTRADIOL [Suspect]
     Active Substance: ESTRADIOL
     Indication: Oophorectomy
     Dosage: 0.1 MG, UNK
     Route: 062
     Dates: start: 2015

REACTIONS (1)
  - Menopausal symptoms [Recovered/Resolved]

NARRATIVE: CASE EVENT DATE: 20150101
